FAERS Safety Report 20038017 (Version 2)
Quarter: 2021Q4

REPORT INFORMATION
  Report Type: Report from Study
  Country: PL (occurrence: PL)
  Receive Date: 20211105
  Receipt Date: 20211201
  Transmission Date: 20220303
  Serious: Yes (Death)
  Sender: FDA-Public Use
  Company Number: PL-EXELIXIS-XL18421045748

PATIENT

DRUGS (17)
  1. CABOZANTINIB [Suspect]
     Active Substance: CABOZANTINIB
     Indication: Renal cell carcinoma
     Dosage: 60 MG, QD
     Route: 048
     Dates: start: 20201216
  2. ATEZOLIZUMAB [Suspect]
     Active Substance: ATEZOLIZUMAB
     Indication: Renal cell carcinoma
     Dosage: 1200 MG, Q3WEEKS
     Route: 042
     Dates: start: 20201216
  3. NEBIVOLOL [Concomitant]
     Active Substance: NEBIVOLOL
     Indication: Coronary artery disease
     Dosage: UNK
  4. CARDURA XL [Concomitant]
     Active Substance: DOXAZOSIN MESYLATE
     Indication: Coronary artery disease
  5. LAPIXEN [Concomitant]
     Indication: Coronary artery disease
  6. ESOMEPRAZOLE MAGNESIUM [Concomitant]
     Active Substance: ESOMEPRAZOLE MAGNESIUM
  7. ATORVAGEN [Concomitant]
  8. TORAMIDE [Concomitant]
  9. SPIRIVA [Concomitant]
     Active Substance: TIOTROPIUM BROMIDE MONOHYDRATE
     Indication: Chronic obstructive pulmonary disease
  10. ZAFIRON [Concomitant]
     Indication: Chronic obstructive pulmonary disease
  11. FLUTIXON [Concomitant]
     Indication: Chronic obstructive pulmonary disease
  12. VENTOLIN [Concomitant]
     Active Substance: ALBUTEROL SULFATE
     Indication: Chronic obstructive pulmonary disease
  13. ACC OPTIMA [Concomitant]
     Indication: Chronic obstructive pulmonary disease
  14. CARZAP [Concomitant]
  15. TIZANIDINE [Concomitant]
     Active Substance: TIZANIDINE
  16. INSULIN HUMAN [Concomitant]
     Active Substance: INSULIN HUMAN
     Indication: Diabetes mellitus
  17. INSULIN HUMAN [Concomitant]
     Active Substance: INSULIN HUMAN
     Indication: Diabetes mellitus

REACTIONS (1)
  - Death [Fatal]

NARRATIVE: CASE EVENT DATE: 20210730
